FAERS Safety Report 12951055 (Version 1)
Quarter: 2016Q4

REPORT INFORMATION
  Report Type: Spontaneous
  Country: US (occurrence: US)
  Receive Date: 20161117
  Receipt Date: 20161117
  Transmission Date: 20170207
  Serious: Yes (Other)
  Sender: FDA-Public Use
  Company Number: US-SA-2016SA206562

PATIENT
  Age: 57 Year
  Sex: Male

DRUGS (2)
  1. TOUJEO [Suspect]
     Active Substance: INSULIN GLARGINE
     Indication: TYPE 2 DIABETES MELLITUS
     Dosage: FREQUENCY: EVERY 3 DAY; Q 3-4 DAYS.. DOSE:45 UNIT(S)
     Route: 065
     Dates: start: 201608
  2. SOLOSTAR [Concomitant]
     Active Substance: DEVICE
     Indication: TYPE 2 DIABETES MELLITUS
     Dosage: FREQUENCY: EVERY 3 DAY; Q 3-4 DAYS..
     Dates: start: 201608

REACTIONS (5)
  - Disability [Unknown]
  - Product supply issue [Unknown]
  - Renal failure [Unknown]
  - Malaise [Unknown]
  - Blood glucose increased [Unknown]
